FAERS Safety Report 22613953 (Version 1)
Quarter: 2023Q2

REPORT INFORMATION
  Report Type: Spontaneous
  Country: CN (occurrence: CN)
  Receive Date: 20230619
  Receipt Date: 20230619
  Transmission Date: 20230721
  Serious: Yes (Death, Life-Threatening, Hospitalization, Other)
  Sender: FDA-Public Use
  Company Number: CN-MLMSERVICE-20230606-4318650-1

PATIENT
  Age: 20 Year
  Sex: Female

DRUGS (1)
  1. TACROLIMUS [Suspect]
     Active Substance: TACROLIMUS
     Indication: Immunosuppressant drug therapy
     Dates: start: 20191001

REACTIONS (5)
  - Post transplant lymphoproliferative disorder [Unknown]
  - Pulmonary tuberculosis [Recovering/Resolving]
  - Metastases to bone marrow [Unknown]
  - Burkitt^s lymphoma [Unknown]
  - Multiple organ dysfunction syndrome [Fatal]

NARRATIVE: CASE EVENT DATE: 20200501
